FAERS Safety Report 23581371 (Version 1)
Quarter: 2024Q1

REPORT INFORMATION
  Report Type: Spontaneous
  Country: US (occurrence: US)
  Receive Date: 20240229
  Receipt Date: 20240229
  Transmission Date: 20240410
  Serious: No
  Sender: FDA-Public Use
  Company Number: US-BRISTOL-MYERS SQUIBB COMPANY-2024-031744

PATIENT
  Age: 64 Year
  Sex: Female

DRUGS (1)
  1. POMALYST [Suspect]
     Active Substance: POMALIDOMIDE
     Indication: Plasma cell myeloma
     Route: 048
     Dates: start: 202310, end: 20240214

REACTIONS (4)
  - Fatigue [Recovered/Resolved]
  - Muscle spasms [Recovered/Resolved]
  - Pain in jaw [Recovered/Resolved]
  - Headache [Recovered/Resolved]
